FAERS Safety Report 19792554 (Version 1)
Quarter: 2021Q3

REPORT INFORMATION
  Report Type: Spontaneous
  Country: US (occurrence: US)
  Receive Date: 20210906
  Receipt Date: 20210906
  Transmission Date: 20211014
  Serious: No
  Sender: FDA-Public Use
  Company Number: US-SA-2021SA293349

PATIENT
  Sex: Female

DRUGS (8)
  1. BETAMETHASON [BETAMETHASONE] [Concomitant]
     Active Substance: BETAMETHASONE
  2. DUPIXENT [Suspect]
     Active Substance: DUPILUMAB
     Indication: DERMATITIS CONTACT
     Dosage: 300 MG, QOW
     Route: 058
  3. OLOPATADINE. [Concomitant]
     Active Substance: OLOPATADINE
  4. DICLOFENAC SODIUM. [Concomitant]
     Active Substance: DICLOFENAC SODIUM
  5. EUCRISA [Concomitant]
     Active Substance: CRISABOROLE
  6. NORTRIPTYLIN [Concomitant]
     Active Substance: NORTRIPTYLINE
  7. EUTHYROX [Concomitant]
     Active Substance: LEVOTHYROXINE SODIUM
  8. FOLIC ACID. [Concomitant]
     Active Substance: FOLIC ACID

REACTIONS (3)
  - Product dose omission in error [Unknown]
  - Product use in unapproved indication [Unknown]
  - Urinary tract infection [Unknown]
